FAERS Safety Report 23287203 (Version 1)
Quarter: 2023Q4

REPORT INFORMATION
  Report Type: Spontaneous
  Country: CN (occurrence: CN)
  Receive Date: 20231212
  Receipt Date: 20231212
  Transmission Date: 20240110
  Serious: Yes (Hospitalization, Other)
  Sender: FDA-Public Use
  Company Number: CN-TAKEDA-2023TUS117491

PATIENT
  Age: 86 Year
  Sex: Male

DRUGS (3)
  1. IXAZOMIB [Suspect]
     Active Substance: IXAZOMIB
     Indication: Plasma cell myeloma recurrent
     Dosage: 4 MILLIGRAM
     Route: 048
     Dates: start: 20230411, end: 20230415
  2. DEXAMETHASONE [Suspect]
     Active Substance: DEXAMETHASONE
     Indication: Chemotherapy
     Dosage: 20 MILLIGRAM
     Route: 048
     Dates: start: 20230411, end: 20230502
  3. CYCLOPHOSPHAMIDE [Suspect]
     Active Substance: CYCLOPHOSPHAMIDE
     Indication: Chemotherapy
     Dosage: 0.3 GRAM
     Route: 041
     Dates: start: 20230411, end: 20230413

REACTIONS (2)
  - Sepsis [Unknown]
  - Enteritis [Unknown]

NARRATIVE: CASE EVENT DATE: 20230415
